FAERS Safety Report 15831977 (Version 1)
Quarter: 2019Q1

REPORT INFORMATION
  Report Type: Spontaneous
  Country: DE (occurrence: US)
  Receive Date: 20190116
  Receipt Date: 20190116
  Transmission Date: 20190417
  Serious: No
  Sender: FDA-Public Use
  Company Number: DE-ALKEM LABORATORIES LIMITED-US-ALKEM-2018-10110

PATIENT
  Age: 17 Year
  Sex: Female

DRUGS (2)
  1. LINEZOLID. [Suspect]
     Active Substance: LINEZOLID
     Indication: INFECTIVE PULMONARY EXACERBATION OF CYSTIC FIBROSIS
     Dosage: 1 DF, UNK
     Route: 048
  2. LINEZOLID. [Suspect]
     Active Substance: LINEZOLID
     Dosage: 1 DF, UNK
     Route: 042

REACTIONS (5)
  - Pruritus allergic [Unknown]
  - Vomiting [Unknown]
  - Nausea [Unknown]
  - Drug intolerance [Unknown]
  - Urticaria [Unknown]
